FAERS Safety Report 19843853 (Version 1)
Quarter: 2021Q3

REPORT INFORMATION
  Report Type: Other
  Country: FR (occurrence: FR)
  Receive Date: 20210917
  Receipt Date: 20210917
  Transmission Date: 20211014
  Serious: Yes (Death, Other)
  Sender: FDA-Public Use
  Company Number: FR-VISTA PHARMACEUTICALS INC.-2118486

PATIENT

DRUGS (3)
  1. DOXYCYCLINE. [Concomitant]
     Active Substance: DOXYCYCLINE
     Route: 065
  2. SULFAMETHOXAZOLE AND TRIMETHOPRIM [Suspect]
     Active Substance: SULFAMETHOXAZOLE\TRIMETHOPRIM
     Indication: WHIPPLE^S DISEASE
     Route: 048
  3. RIFAMPICIN [Concomitant]
     Active Substance: RIFAMPIN
     Route: 065

REACTIONS (2)
  - Immune reconstitution inflammatory syndrome [Fatal]
  - Drug ineffective [Unknown]
